FAERS Safety Report 9156056 (Version 3)
Quarter: 2013Q2

REPORT INFORMATION
  Report Type: Spontaneous
  Country: BR (occurrence: BR)
  Receive Date: 20130311
  Receipt Date: 20130513
  Transmission Date: 20140414
  Serious: Yes (Other)
  Sender: FDA-Public Use
  Company Number: CHNY2013BR000757

PATIENT
  Sex: Male
  Weight: 100 kg

DRUGS (1)
  1. LAMISILATE [Suspect]
     Indication: TINEA PEDIS
     Dosage: UNK, UNK
     Route: 061

REACTIONS (8)
  - Application site haemorrhage [Unknown]
  - Limb injury [Unknown]
  - Wound secretion [Unknown]
  - Skin burning sensation [Not Recovered/Not Resolved]
  - Pruritus [Not Recovered/Not Resolved]
  - Tinea pedis [Not Recovered/Not Resolved]
  - Application site pain [Not Recovered/Not Resolved]
  - Drug ineffective [Unknown]
